FAERS Safety Report 5162762-8 (Version None)
Quarter: 2006Q4

REPORT INFORMATION
  Report Type: 
  Country: None (occurrence: None)
  Receive Date: 20061121
  Receipt Date: 20061114
  Transmission Date: 20070319
  Serious: Yes (Hospitalization)
  Sender: FDA-Public Use
  Company Number: GXBR2006US02052

PATIENT
  Age: 66 Year
  Sex: Male

DRUGS (1)
  1. TRIFLUOPERAZINE HCL [Suspect]
     Dosage: 10 MG, QD
     Dates: start: 20050701

REACTIONS (3)
  - DRUG DISPENSING ERROR [None]
  - INCORRECT DOSE ADMINISTERED [None]
  - MEDICATION ERROR [None]
